FAERS Safety Report 4554011-6 (Version None)
Quarter: 2005Q1

REPORT INFORMATION
  Report Type: 
  Country: None (occurrence: None)
  Receive Date: 20050118
  Receipt Date: 20041012
  Transmission Date: 20050727
  Serious: Yes (Hospitalization)
  Sender: FDA-Public Use
  Company Number: SG-NOVOPROD-239944

PATIENT
  Age: 28 Year
  Sex: Male

DRUGS (3)
  1. NOVOSEVEN [Suspect]
     Indication: HAEMOPHILIA A WITH ANTI FACTOR VIII
     Dosage: 60 UG/KG, QD ON DAY 1-3
  2. NOVOSEVEN [Suspect]
     Dosage: 60 UG/KG, QD ON DAY 5
  3. PROFILNINE [Concomitant]
     Dosage: GIVEN ON DAY 4

REACTIONS (1)
  - DEEP VEIN THROMBOSIS [None]
